FAERS Safety Report 4835490-3 (Version None)
Quarter: 2005Q4

REPORT INFORMATION
  Report Type: 
  Country: None (occurrence: None)
  Receive Date: 20051123
  Receipt Date: 20050630
  Transmission Date: 20060501
  Serious: Yes (Other)
  Sender: FDA-Public Use
  Company Number: US-JNJFOC-20051100036

PATIENT
  Sex: Male
  Weight: 97.52 kg

DRUGS (6)
  1. REMICADE [Suspect]
     Indication: CROHN'S DISEASE
     Route: 042
  2. DARVOCET [Concomitant]
  3. DARVOCET [Concomitant]
  4. IMURAN [Concomitant]
  5. ADVIL [Concomitant]
  6. CIPROFLOXACIN [Concomitant]

REACTIONS (15)
  - CARPAL TUNNEL SYNDROME [None]
  - COLITIS [None]
  - CONDITION AGGRAVATED [None]
  - DEMYELINATION [None]
  - DIZZINESS [None]
  - ERECTILE DYSFUNCTION [None]
  - HEMIPLEGIA [None]
  - HEPATIC CYST [None]
  - HEPATIC TRAUMA [None]
  - HYPOAESTHESIA [None]
  - NEUROLOGICAL EXAMINATION ABNORMAL [None]
  - PARAESTHESIA [None]
  - SEBORRHOEIC DERMATITIS [None]
  - THERAPEUTIC RESPONSE DECREASED [None]
  - UMBILICAL HERNIA [None]
